FAERS Safety Report 19431182 (Version 1)
Quarter: 2021Q2

REPORT INFORMATION
  Report Type: Spontaneous
  Country: US (occurrence: US)
  Receive Date: 20210617
  Receipt Date: 20210617
  Transmission Date: 20210717
  Serious: No
  Sender: FDA-Public Use
  Company Number: US-PFIZER INC-2021312832

PATIENT
  Age: 51 Year
  Sex: Male
  Weight: 106.58 kg

DRUGS (1)
  1. INLYTA [Suspect]
     Active Substance: AXITINIB
     Indication: RENAL CANCER
     Dosage: 5MG, 2X/DAY,(TAKE 1 TABLET EVERY 12 HOURS
     Route: 048
     Dates: start: 20201218

REACTIONS (1)
  - Hypertension [Unknown]
